FAERS Safety Report 4478614-2 (Version None)
Quarter: 2004Q4

REPORT INFORMATION
  Report Type: 
  Country: None (occurrence: None)
  Receive Date: 20041019
  Receipt Date: 20041008
  Transmission Date: 20050328
  Serious: Yes (Death, Life-Threatening)
  Sender: FDA-Public Use
  Company Number: 200413799FR

PATIENT
  Age: 67 Year
  Sex: Male

DRUGS (9)
  1. LASIX [Suspect]
     Route: 048
     Dates: end: 20040913
  2. CIFLOX [Suspect]
     Route: 048
     Dates: start: 20040907
  3. ROCEPHIN [Suspect]
     Route: 042
     Dates: start: 20040906, end: 20040907
  4. CORGARD [Suspect]
     Route: 048
     Dates: end: 20040916
  5. TAZOCILLINE [Suspect]
     Route: 042
     Dates: start: 20040907, end: 20040915
  6. AMIKACIN [Suspect]
     Route: 042
     Dates: start: 20040906, end: 20040907
  7. DOXIUM [Suspect]
     Dosage: DOSE UNIT: UNITS
     Route: 048
     Dates: end: 20040906
  8. MOPRAL [Suspect]
     Route: 048
     Dates: end: 20040916
  9. CALCIDIA [Suspect]
     Route: 048
     Dates: end: 20040916

REACTIONS (5)
  - DEATH [None]
  - LUNG DISORDER [None]
  - PLEURISY [None]
  - SALMONELLA SEPSIS [None]
  - THROMBOCYTOPENIA [None]
